FAERS Safety Report 26142522 (Version 1)
Quarter: 2025Q4

REPORT INFORMATION
  Report Type: Spontaneous
  Country: US (occurrence: US)
  Receive Date: 20251210
  Receipt Date: 20251210
  Transmission Date: 20260117
  Serious: No
  Sender: SANDOZ
  Company Number: US-SANDOZ-SDZ2025US093441

PATIENT
  Sex: Female

DRUGS (1)
  1. ESTRADIOL [Suspect]
     Active Substance: ESTRADIOL
     Indication: Product used for unknown indication
     Dosage: 0.075 MG / 1 10
     Route: 062
     Dates: start: 2024

REACTIONS (3)
  - Poor quality device used [Unknown]
  - Device adhesion issue [Unknown]
  - Product quality issue [Unknown]
